FAERS Safety Report 18888435 (Version 5)
Quarter: 2021Q2

REPORT INFORMATION
  Report Type: Spontaneous
  Country: ES (occurrence: ES)
  Receive Date: 20210212
  Receipt Date: 20210430
  Transmission Date: 20210717
  Serious: Yes (Hospitalization)
  Sender: FDA-Public Use
  Company Number: ES-CELGENEUS-ESP-20210202268

PATIENT
  Age: 68 Year
  Sex: Female

DRUGS (16)
  1. VENETOCLAX. [Suspect]
     Active Substance: VENETOCLAX
     Dosage: 400 MILLIGRAM
     Route: 048
     Dates: start: 20210111, end: 20210201
  2. IDARUBICIN [Concomitant]
     Active Substance: IDARUBICIN
     Indication: ACUTE MYELOID LEUKAEMIA
     Route: 065
     Dates: start: 20200607, end: 20200609
  3. CYTARABINE. [Concomitant]
     Active Substance: CYTARABINE
     Indication: ACUTE MYELOID LEUKAEMIA
     Route: 065
     Dates: start: 20200610, end: 20200616
  4. BISOPROLOL [Concomitant]
     Active Substance: BISOPROLOL
     Dosage: 2.5 MILLIGRAM
     Route: 048
     Dates: start: 20210107, end: 20210201
  5. CYTARABINE. [Concomitant]
     Active Substance: CYTARABINE
     Route: 065
     Dates: start: 20200809, end: 20200813
  6. BISOPROLOL [Concomitant]
     Active Substance: BISOPROLOL
     Indication: BUNDLE BRANCH BLOCK RIGHT
     Dosage: 2.5 MILLIGRAM
     Route: 048
     Dates: start: 20140716
  7. AMLODIPINO [Concomitant]
     Active Substance: AMLODIPINE BESYLATE
     Indication: HYPERTENSION
     Dosage: 10 MILLIGRAM
     Route: 065
     Dates: start: 20140116
  8. ESPIRONOLACTONA [Concomitant]
     Active Substance: SPIRONOLACTONE
     Dosage: 25 MILLIGRAM
     Route: 065
     Dates: start: 20210107, end: 20210201
  9. MIDOSTAURIN [Concomitant]
     Active Substance: MIDOSTAURIN
     Indication: ACUTE MYELOID LEUKAEMIA
     Route: 065
     Dates: start: 20200817, end: 20200829
  10. MIDOSTAURIN [Concomitant]
     Active Substance: MIDOSTAURIN
     Route: 065
     Dates: start: 20201113, end: 20201126
  11. OMEPRAZOLE. [Concomitant]
     Active Substance: OMEPRAZOLE
     Indication: GASTRIC DISORDER
     Dosage: 20 MILLIGRAM
     Route: 048
     Dates: start: 20200607
  12. VENETOCLAX. [Suspect]
     Active Substance: VENETOCLAX
     Indication: ACUTE MYELOID LEUKAEMIA
     Dosage: 400 MILLIGRAM
     Route: 048
     Dates: start: 20210111, end: 20210111
  13. ESPIRONOLACTONA [Concomitant]
     Active Substance: SPIRONOLACTONE
     Indication: HYPERTENSION
     Dosage: 25 MILLIGRAM
     Route: 065
     Dates: start: 20140716, end: 20201222
  14. CYTARABINE. [Concomitant]
     Active Substance: CYTARABINE
     Route: 065
     Dates: start: 20201106, end: 20201110
  15. ACICLOVIR [Concomitant]
     Active Substance: ACYCLOVIR
     Indication: INFECTION PROPHYLAXIS
     Dosage: 1600 MILLIGRAM
     Route: 048
     Dates: start: 20200607
  16. AZACITIDINE. [Suspect]
     Active Substance: AZACITIDINE
     Indication: ACUTE MYELOID LEUKAEMIA
     Route: 058
     Dates: start: 20200111, end: 20210115

REACTIONS (1)
  - COVID-19 pneumonia [Recovered/Resolved]

NARRATIVE: CASE EVENT DATE: 20210201
